FAERS Safety Report 14252210 (Version 7)
Quarter: 2018Q4

REPORT INFORMATION
  Report Type: Report from Study
  Country: CN (occurrence: CN)
  Receive Date: 20171205
  Receipt Date: 20181225
  Transmission Date: 20190204
  Serious: Yes (Death, Hospitalization)
  Sender: FDA-Public Use
  Company Number: CN-ROCHE-2029812

PATIENT
  Age: 45 Year
  Sex: Male
  Weight: 58 kg

DRUGS (17)
  1. TRICHLOROACETIC ACID [Concomitant]
     Active Substance: TRICHLOROACETIC ACID
     Indication: HEPATIC FAILURE
     Dosage: DOSE: 2
     Route: 042
     Dates: start: 20171116, end: 20171119
  2. COMPOUND GLYCYRRHIZIN (CYSTEINE/GLYCINE/GLYCYRRHIZIN) [Concomitant]
     Route: 048
     Dates: start: 20171121, end: 20171122
  3. GLUTATHIONE [Concomitant]
     Active Substance: GLUTATHIONE
     Dosage: REDUCED
     Route: 065
     Dates: start: 20171031, end: 20171101
  4. BICYCLOL [Concomitant]
     Active Substance: BICYCLOL
     Route: 048
     Dates: start: 20171123, end: 20171205
  5. TRICHLOROACETIC ACID [Concomitant]
     Active Substance: TRICHLOROACETIC ACID
     Dosage: DOSE: 2
     Route: 042
     Dates: start: 20171120, end: 20171122
  6. COMPOUND GLYCYRRHIZIN (CYSTEINE/GLYCINE/GLYCYRRHIZIN) [Concomitant]
     Route: 048
     Dates: start: 20171101, end: 20171105
  7. BICYCLOL [Concomitant]
     Active Substance: BICYCLOL
     Indication: HEPATIC FAILURE
     Route: 048
     Dates: start: 20171026, end: 20171031
  8. ATEZOLIZUMAB. [Suspect]
     Active Substance: ATEZOLIZUMAB
     Indication: HEPATOCELLULAR CARCINOMA
     Dosage: MOST RECENT DOSE PRIOR TO SAES ONSET ON 16/NOV/2017
     Route: 042
     Dates: start: 20171116
  9. COMPOUND DIISOPROPYLAMINE DICHLOROACETATE [Concomitant]
     Active Substance: DIISOPROPYLAMMONIUM DICHLOROACETATE
     Route: 065
     Dates: start: 20171120, end: 20171122
  10. COMPOUND GLYCYRRHIZIN (CYSTEINE/GLYCINE/GLYCYRRHIZIN) [Concomitant]
     Route: 048
     Dates: start: 20171031, end: 20171101
  11. GLUTATHIONE [Concomitant]
     Active Substance: GLUTATHIONE
     Route: 065
     Dates: start: 20171101, end: 20171105
  12. COMPOUND GLYCYRRHIZIN (CYSTEINE/GLYCINE/GLYCYRRHIZIN) [Concomitant]
     Route: 048
     Dates: start: 20171123, end: 20171205
  13. ENTECAVIR. [Concomitant]
     Active Substance: ENTECAVIR
     Indication: HEPATITIS B
     Route: 065
     Dates: start: 201612, end: 20171205
  14. COMPOUND DIISOPROPYLAMINE DICHLOROACETATE [Concomitant]
     Active Substance: DIISOPROPYLAMMONIUM DICHLOROACETATE
     Indication: HEPATIC FAILURE
     Route: 065
     Dates: start: 20171116, end: 20171119
  15. BICYCLOL [Concomitant]
     Active Substance: BICYCLOL
     Route: 048
     Dates: start: 20171031
  16. INOSINE/SODIUM CHLORIDE [Concomitant]
     Route: 065
     Dates: start: 20171101, end: 20171105
  17. OXYCODONE/PARACETAMOL [Concomitant]
     Active Substance: ACETAMINOPHEN\OXYCODONE HYDROCHLORIDE
     Indication: ABDOMINAL PAIN UPPER
     Route: 065
     Dates: start: 20171130, end: 20171205

REACTIONS (3)
  - Ascites [Not Recovered/Not Resolved]
  - Blood bilirubin increased [Unknown]
  - Hepatic failure [Not Recovered/Not Resolved]

NARRATIVE: CASE EVENT DATE: 20171117
